FAERS Safety Report 23895840 (Version 1)
Quarter: 2024Q2

REPORT INFORMATION
  Report Type: Spontaneous
  Country: US (occurrence: US)
  Receive Date: 20240524
  Receipt Date: 20240524
  Transmission Date: 20240716
  Serious: Yes (Other)
  Sender: FDA-Public Use
  Company Number: US-LUPIN HEALTHCARE (UK) LIMITED-2024-04070

PATIENT
  Age: 85 Year
  Sex: Male

DRUGS (1)
  1. MEMANTINE [Suspect]
     Active Substance: MEMANTINE
     Indication: Dementia Alzheimer^s type
     Dosage: 10 MG, BID  (20 YEARS)
     Route: 065

REACTIONS (4)
  - Withdrawal syndrome [Unknown]
  - Intentional product misuse [Unknown]
  - Seizure [Unknown]
  - Off label use [Unknown]
